FAERS Safety Report 10136411 (Version 2)
Quarter: 2014Q2

REPORT INFORMATION
  Report Type: Spontaneous
  Country: US (occurrence: US)
  Receive Date: 20140429
  Receipt Date: 20140516
  Transmission Date: 20141212
  Serious: Yes (Other)
  Sender: FDA-Public Use
  Company Number: US-JNJFOC-20140412916

PATIENT
  Age: 87 Year
  Sex: Female
  Weight: 63.5 kg

DRUGS (8)
  1. XARELTO [Suspect]
     Indication: DEEP VEIN THROMBOSIS
     Route: 048
     Dates: start: 201309
  2. XARELTO [Suspect]
     Indication: CEREBROVASCULAR ACCIDENT PROPHYLAXIS
     Route: 048
     Dates: start: 201309
  3. XARELTO [Suspect]
     Indication: ATRIAL FIBRILLATION
     Route: 048
     Dates: start: 201309
  4. TYLENOL [Suspect]
     Route: 048
  5. TYLENOL [Suspect]
     Indication: PAIN
     Dosage: 1-2 PER DAY
     Route: 048
     Dates: start: 201309
  6. DILTIAZEM [Concomitant]
     Route: 065
  7. FISH OIL [Concomitant]
     Route: 065
  8. MULTIVITAMINS [Concomitant]
     Route: 065

REACTIONS (1)
  - Gamma-glutamyltransferase increased [Not Recovered/Not Resolved]
